FAERS Safety Report 9517381 (Version 5)
Quarter: 2014Q3

REPORT INFORMATION
  Report Type: Report from Study
  Country: US (occurrence: US)
  Receive Date: 20130911
  Receipt Date: 20140826
  Transmission Date: 20150326
  Serious: Yes (Hospitalization)
  Sender: FDA-Public Use
  Company Number: US-SANOFI-AVENTIS-2013SA089717

PATIENT
  Age: 59 Year
  Sex: Female

DRUGS (1)
  1. AUBAGIO [Suspect]
     Active Substance: TERIFLUNOMIDE
     Indication: MULTIPLE SCLEROSIS
     Dosage: THERAPY START DATE : 3.5 WEEKS
     Route: 048
     Dates: start: 20130812

REACTIONS (9)
  - Renal disorder [Not Recovered/Not Resolved]
  - Cognitive disorder [Unknown]
  - Pain in extremity [Unknown]
  - Musculoskeletal disorder [Unknown]
  - Fatigue [Not Recovered/Not Resolved]
  - Dehydration [Not Recovered/Not Resolved]
  - Sleep disorder [Unknown]
  - Skin exfoliation [Unknown]
  - Onychoclasis [Unknown]

NARRATIVE: CASE EVENT DATE: 201309
